FAERS Safety Report 12570570 (Version 2)
Quarter: 2016Q3

REPORT INFORMATION
  Report Type: Report from Study
  Country: JP (occurrence: JP)
  Receive Date: 20160719
  Receipt Date: 20160921
  Transmission Date: 20161109
  Serious: Yes (Other)
  Sender: FDA-Public Use
  Company Number: JP-OTSUKA-JP-2014-20074

PATIENT
  Age: 44 Year
  Sex: Male
  Weight: 71.7 kg

DRUGS (3)
  1. BEZAFIBRATE [Concomitant]
     Active Substance: BEZAFIBRATE
     Indication: PRODUCT USED FOR UNKNOWN INDICATION
     Dosage: 400 MG, DAILY DOSE
     Route: 048
  2. MAINTATE [Concomitant]
     Active Substance: BISOPROLOL FUMARATE
     Indication: PRODUCT USED FOR UNKNOWN INDICATION
     Dosage: 2.5 MG, DAILY DOSE
     Route: 048
  3. TOLVAPTAN [Suspect]
     Active Substance: TOLVAPTAN
     Indication: CONGENITAL CYSTIC KIDNEY DISEASE
     Dosage: 120 MG, DAILY DOSE (DIVIDED 2 DOSES)
     Route: 048
     Dates: start: 20140611

REACTIONS (8)
  - Diabetes mellitus [Recovering/Resolving]
  - Blood creatinine increased [Not Recovered/Not Resolved]
  - Rhinorrhoea [Recovered/Resolved]
  - Hypernatraemia [Recovered/Resolved]
  - Upper respiratory tract inflammation [Recovered/Resolved]
  - Thirst [Recovering/Resolving]
  - Upper respiratory tract inflammation [Recovered/Resolved]
  - Epigastric discomfort [Recovered/Resolved]

NARRATIVE: CASE EVENT DATE: 20140611
